FAERS Safety Report 14964587 (Version 2)
Quarter: 2018Q3

REPORT INFORMATION
  Report Type: Spontaneous
  Country: US (occurrence: US)
  Receive Date: 20180601
  Receipt Date: 20180725
  Transmission Date: 20181010
  Serious: Yes (Other)
  Sender: FDA-Public Use
  Company Number: US-BRISTOL-MYERS SQUIBB COMPANY-BMS-2018-048337

PATIENT
  Age: 46 Year
  Sex: Female

DRUGS (1)
  1. KENALOG?40 [Suspect]
     Active Substance: TRIAMCINOLONE ACETONIDE
     Indication: PLANTAR FASCIITIS
     Dosage: 1 DF=1CC
     Route: 030
     Dates: start: 20180515, end: 20180515

REACTIONS (4)
  - Abscess limb [Unknown]
  - Suspected product contamination [Unknown]
  - Cellulitis [Unknown]
  - Osteomyelitis [Not Recovered/Not Resolved]

NARRATIVE: CASE EVENT DATE: 20180518
